FAERS Safety Report 8367322-3 (Version None)
Quarter: 2012Q2

REPORT INFORMATION
  Report Type: 
  Country: None (occurrence: None)
  Receive Date: 20120517
  Receipt Date: 20120514
  Transmission Date: 20120825
  Serious: Yes (Disabling, Other)
  Sender: FDA-Public Use
  Company Number: US-PFIZER INC-2012117269

PATIENT
  Sex: Female
  Weight: 92.971 kg

DRUGS (5)
  1. EFFEXOR XR [Suspect]
     Indication: DEPRESSION
     Dosage: 225 MG, 1X/DAY
     Route: 048
  2. ACETYLSALICYLIC ACID [Concomitant]
     Dosage: 325 MG, UNK
  3. XANAX [Suspect]
     Indication: PANIC DISORDER
     Dosage: 0.5 MG, AS NEEDED
     Route: 048
  4. EFFEXOR XR [Suspect]
     Indication: ANXIETY
     Dosage: 150 MG, 1X/DAY
     Route: 048
  5. EFFEXOR XR [Suspect]
     Indication: PANIC DISORDER
     Dosage: UNK, 1X/DAY
     Route: 048

REACTIONS (4)
  - HYPERTENSION [None]
  - BLOOD CHOLESTEROL INCREASED [None]
  - PANIC ATTACK [None]
  - DIABETES MELLITUS [None]
